FAERS Safety Report 12633820 (Version 1)
Quarter: 2016Q3

REPORT INFORMATION
  Report Type: Spontaneous
  Country: US (occurrence: None)
  Receive Date: 20160808
  Receipt Date: 20160808
  Transmission Date: 20161109
  Serious: Yes (Hospitalization)
  Sender: FDA-Public Use
  Company Number: None

PATIENT
  Age: 67 Year
  Sex: Male
  Weight: 81.65 kg

DRUGS (2)
  1. BABY ASPIRIN [Concomitant]
     Active Substance: ASPIRIN
  2. ATORVASTATIN CALCIUM 10MG GREENSTONE [Suspect]
     Active Substance: ATORVASTATIN CALCIUM
     Indication: BLOOD CHOLESTEROL
     Dosage: 10MG 1 PILL 1 PER DAY MOUTH
     Route: 048
     Dates: start: 20140319, end: 20140801

REACTIONS (6)
  - Skull fracture [None]
  - Arthropathy [None]
  - Fall [None]
  - Memory impairment [None]
  - Rotator cuff syndrome [None]
  - Muscle disorder [None]
